FAERS Safety Report 7215249-2 (Version None)
Quarter: 2011Q1

REPORT INFORMATION
  Report Type: 
  Country: None (occurrence: None)
  Receive Date: 20110107
  Receipt Date: 20101229
  Transmission Date: 20110831
  Serious: Yes (Hospitalization)
  Sender: FDA-Public Use
  Company Number: PHHY2010ES90128

PATIENT
  Age: 3 Year
  Sex: Female

DRUGS (3)
  1. FLUTOX [Suspect]
     Indication: BRONCHITIS
     Dosage: UNK
     Route: 048
     Dates: start: 20100320, end: 20100322
  2. ESTILSONA [Suspect]
     Indication: BRONCHITIS
     Dosage: UNK
     Route: 048
     Dates: start: 20100320, end: 20100322
  3. ZASTEN [Suspect]
     Indication: BRONCHITIS
     Dosage: 0.2 MG/ML, UNK
     Route: 048
     Dates: start: 20100320, end: 20100322

REACTIONS (2)
  - GENERALISED ERYTHEMA [None]
  - PRURITUS [None]
